FAERS Safety Report 24785330 (Version 1)
Quarter: 2024Q4

REPORT INFORMATION
  Report Type: Spontaneous
  Country: FR (occurrence: FR)
  Receive Date: 20241228
  Receipt Date: 20241228
  Transmission Date: 20250115
  Serious: Yes (Hospitalization)
  Sender: TEVA
  Company Number: None

PATIENT
  Age: 62 Year
  Sex: Female
  Weight: 56 kg

DRUGS (4)
  1. FLUCONAZOLE [Suspect]
     Active Substance: FLUCONAZOLE
     Indication: Upper aerodigestive tract infection
     Route: 048
     Dates: start: 20241024, end: 20241202
  2. PANTOPRAZOLE [Suspect]
     Active Substance: PANTOPRAZOLE
     Indication: Prophylaxis against gastrointestinal ulcer
     Dosage: 40 MG/D
     Route: 048
     Dates: end: 20241128
  3. METRONIDAZOLE [Suspect]
     Active Substance: METRONIDAZOLE
     Indication: Upper aerodigestive tract infection
     Dosage: 3 TABS OF 500 MG/D
     Route: 048
     Dates: start: 20241023, end: 20241203
  4. AVIBACTAM\AZTREONAM [Suspect]
     Active Substance: AVIBACTAM\AZTREONAM
     Indication: Upper aerodigestive tract infection
     Dosage: 1.5 G/0.5 G,
     Route: 042
     Dates: start: 20241030, end: 20241202

REACTIONS (1)
  - Cholestasis [Not Recovered/Not Resolved]

NARRATIVE: CASE EVENT DATE: 20241106
